FAERS Safety Report 8078397-3 (Version None)
Quarter: 2012Q1

REPORT INFORMATION
  Report Type: 
  Country: None (occurrence: None)
  Receive Date: 20120127
  Receipt Date: 20110204
  Transmission Date: 20120608
  Serious: No
  Sender: FDA-Public Use
  Company Number: US-ABBOTT-10P-163-0654218-00

PATIENT
  Age: 23 Year
  Sex: Female

DRUGS (3)
  1. HUMIRA [Suspect]
     Indication: INFLAMMATORY BOWEL DISEASE
     Dates: start: 20080101, end: 20090101
  2. HUMIRA [Suspect]
     Indication: CROHN'S DISEASE
     Dates: start: 20090101
  3. HUMIRA [Suspect]
     Indication: BONE DISORDER

REACTIONS (8)
  - CROHN'S DISEASE [None]
  - GLOSSODYNIA [None]
  - OVARIAN CYST [None]
  - TONGUE DISORDER [None]
  - CLOSTRIDIAL INFECTION [None]
  - LIP PAIN [None]
  - ABDOMINAL PAIN [None]
  - CHAPPED LIPS [None]
